FAERS Safety Report 16629942 (Version 2)
Quarter: 2019Q3

REPORT INFORMATION
  Report Type: Report from Study
  Country: FR (occurrence: FR)
  Receive Date: 20190725
  Receipt Date: 20190813
  Transmission Date: 20191004
  Serious: Yes (Hospitalization)
  Sender: FDA-Public Use
  Company Number: FR-REGENERON PHARMACEUTICALS, INC.-2019-44248

PATIENT

DRUGS (10)
  1. CEMIPLIMAB [Suspect]
     Active Substance: CEMIPLIMAB
     Indication: SQUAMOUS CELL CARCINOMA OF SKIN
     Dosage: 228 MG, Q15D
     Route: 042
     Dates: start: 20190701
  2. IKOREL [Concomitant]
     Active Substance: NICORANDIL
     Indication: HYPERTENSION
     Dosage: 10 MG, QD
  3. PARIET [Concomitant]
     Active Substance: RABEPRAZOLE SODIUM
     Indication: GASTROOESOPHAGEAL REFLUX DISEASE
     Dosage: 20 MG, QD
  4. LEVOTHYROX [Concomitant]
     Active Substance: LEVOTHYROXINE
     Indication: PRODUCT USED FOR UNKNOWN INDICATION
     Dosage: 25 UG, QD (1.5 IN THE MORNING)
  5. CORTANCYL [Concomitant]
     Active Substance: PREDNISONE
     Indication: RHEUMATOID ARTHRITIS
     Dosage: 7.5 MG
  6. COUMADINE [Concomitant]
     Active Substance: WARFARIN SODIUM
     Indication: ACUTE CORONARY SYNDROME
     Dosage: 1.5 MG, QD
  7. BISOPROLOL [Concomitant]
     Active Substance: BISOPROLOL
     Indication: ATRIAL FIBRILLATION
     Dosage: 2.5 MG, BID (1 IN THE MORNING AND 1 IN THE EVENING)
  8. EZETROL [Concomitant]
     Active Substance: EZETIMIBE
     Indication: HYPERTENSION
     Dosage: 10 MG, QD
  9. KALEORID LP [Concomitant]
     Active Substance: POTASSIUM CHLORIDE
     Indication: PRODUCT USED FOR UNKNOWN INDICATION
     Dosage: 1000 MG, QD (1 IN THE MORNING)
  10. COAPROVEL [Concomitant]
     Active Substance: HYDROCHLOROTHIAZIDE\IRBESARTAN
     Indication: HYPERTENSION
     Dosage: 300MG/25MG, QD

REACTIONS (5)
  - Erythema [Recovered/Resolved]
  - Pain [Recovered/Resolved]
  - Pyrexia [Recovered/Resolved]
  - Rheumatoid arthritis [Recovered/Resolved]
  - Joint swelling [Recovered/Resolved]

NARRATIVE: CASE EVENT DATE: 20190702
